FAERS Safety Report 20605514 (Version 1)
Quarter: 2022Q1

REPORT INFORMATION
  Report Type: Spontaneous
  Country: ES (occurrence: ES)
  Receive Date: 20220317
  Receipt Date: 20220317
  Transmission Date: 20220423
  Serious: Yes (Other)
  Sender: FDA-Public Use
  Company Number: ES-CELLTRION INC.-2022ES003028

PATIENT

DRUGS (8)
  1. RITUXIMAB [Suspect]
     Active Substance: RITUXIMAB
     Indication: Nephrotic syndrome
     Dosage: 375 MG/M2 (IN SALINE FISTOLOGICAL SOLUTION, CONCENTRATION 1MG/ML)
     Route: 042
  2. PREDNISONE [Suspect]
     Active Substance: PREDNISONE
     Indication: Product used for unknown indication
     Dosage: 40 MG/M2/ 48H (AT THE TIME OF RTX INFUSION, ALL PATIENTS RECEIVED A DOSE OF 40MG/M2/48HR)
  3. ACETAMINOPHEN [Concomitant]
     Active Substance: ACETAMINOPHEN
     Indication: Premedication
     Dosage: 15 MG/KG (PREMEDICATED FOR 30-60MIN BEFORE DRUG ADMINISTRATION IN ORDER TO MINIMISE POTENTIAL SIDE E
     Route: 048
  4. DEXCHLORPHENIRAMINE [Concomitant]
     Active Substance: DEXCHLORPHENIRAMINE
     Indication: Premedication
     Dosage: 0.1 MG/KG (PREMEDICATED FOR 30-60MIN BEFORE DRUG ADMINISTRATION IN ORDER TO MINIMISE POTENTIAL SIDE
     Route: 048
  5. HYDROCORTISONE [Concomitant]
     Active Substance: HYDROCORTISONE
     Indication: Premedication
     Dosage: 4 MG/KG (PREMEDICATED FOR 30-60MIN BEFORE DRUG ADMINISTRATION IN ORDER TO MINIMISE POTENTIAL SIDE EF
     Route: 042
  6. METHYLPREDNISOLONE [Concomitant]
     Active Substance: METHYLPREDNISOLONE
     Indication: Premedication
     Dosage: 1-1.5MG/KG (PREMEDICATED FOR 30-60MIN BEFORE DRUG ADMINISTRATION IN ORDER TO MINIMISE POTENTIAL SIDE
     Route: 042
  7. MYCOPHENOLATE MOFETIL [Concomitant]
     Active Substance: MYCOPHENOLATE MOFETIL
     Dosage: 400-600 MG/M2/ 12H
  8. SULFAMETHOXAZOLE\TRIMETHOPRIM [Concomitant]
     Active Substance: SULFAMETHOXAZOLE\TRIMETHOPRIM
     Indication: Prophylaxis
     Dosage: PROGRESSIVE TAPERING OF STEROID DOSE (USUSALLY 10MG/M2 EVERY TWO WEEKS) WAS INITIATED UNTIL COMPLETE

REACTIONS (5)
  - Nephrotic syndrome [Unknown]
  - Disease recurrence [Unknown]
  - Rash [Unknown]
  - Drug effective for unapproved indication [Unknown]
  - Off label use [Unknown]
